FAERS Safety Report 26073400 (Version 1)
Quarter: 2025Q4

REPORT INFORMATION
  Report Type: Spontaneous
  Country: BR (occurrence: BR)
  Receive Date: 20251121
  Receipt Date: 20251121
  Transmission Date: 20260117
  Serious: Yes (Other)
  Sender: CHEPLAPHARM
  Company Number: BR-BIOPAS-2025-BR-000253

PATIENT
  Sex: Female

DRUGS (16)
  1. CLONAZEPAM [Suspect]
     Active Substance: CLONAZEPAM
     Indication: Insomnia
     Dosage: INITIATED THE USE OF RIVOTRIL 2.5 MG/ML ON AN UNSPECIFIED DATE (REPORTED AS ?A LONG TIME AGO?)
     Route: 060
  2. CLONAZEPAM [Suspect]
     Active Substance: CLONAZEPAM
     Indication: Panic disorder
     Dosage: INITIATED THE USE OF RIVOTRIL 2.5 MG/ML ON AN UNSPECIFIED DATE (REPORTED AS ?A LONG TIME AGO?)
     Route: 060
  3. CLONAZEPAM [Suspect]
     Active Substance: CLONAZEPAM
     Indication: Anxiety
     Dosage: INITIATED THE USE OF RIVOTRIL 2.5 MG/ML ON AN UNSPECIFIED DATE (REPORTED AS ?A LONG TIME AGO?)
     Route: 060
  4. CLONAZEPAM [Suspect]
     Active Substance: CLONAZEPAM
     Indication: Depression
     Dosage: INITIATED THE USE OF RIVOTRIL 2.5 MG/ML ON AN UNSPECIFIED DATE (REPORTED AS ?A LONG TIME AGO?)
     Route: 060
  5. CLONAZEPAM [Suspect]
     Active Substance: CLONAZEPAM
     Indication: Insomnia
     Dosage: THE PHYSICIAN ADVISED HER TO TAKE 1 DROP OF RIVOTRIL 2.5MG/ML DURING CRISIS EPISODES?REPORTED AS...
     Route: 060
  6. CLONAZEPAM [Suspect]
     Active Substance: CLONAZEPAM
     Indication: Panic disorder
     Dosage: THE PHYSICIAN ADVISED HER TO TAKE 1 DROP OF RIVOTRIL 2.5MG/ML DURING CRISIS EPISODES?REPORTED AS...
     Route: 060
  7. CLONAZEPAM [Suspect]
     Active Substance: CLONAZEPAM
     Indication: Anxiety
     Dosage: THE PHYSICIAN ADVISED HER TO TAKE 1 DROP OF RIVOTRIL 2.5MG/ML DURING CRISIS EPISODES?REPORTED AS...
     Route: 060
  8. CLONAZEPAM [Suspect]
     Active Substance: CLONAZEPAM
     Indication: Depression
     Dosage: THE PHYSICIAN ADVISED HER TO TAKE 1 DROP OF RIVOTRIL 2.5MG/ML DURING CRISIS EPISODES?REPORTED AS...
     Route: 060
  9. CLONAZEPAM [Suspect]
     Active Substance: CLONAZEPAM
     Route: 048
     Dates: start: 20251110
  10. CLORIDRATO DE BUPROPIONA [Concomitant]
     Dates: start: 202510
  11. METFORMINA IF [Concomitant]
     Dates: start: 2005
  12. LOSARTAN [Concomitant]
     Active Substance: LOSARTAN
  13. PURAN [Concomitant]
     Active Substance: LEVOTHYROXINE SODIUM
     Route: 048
     Dates: start: 2005
  14. WARFARIN SODIUM [Concomitant]
     Active Substance: WARFARIN SODIUM
     Indication: Heart disease congenital
     Route: 048
  15. DIPIRONA DUTRIEC [Concomitant]
     Indication: Pyrexia
     Dates: start: 2005
  16. DIPIRONA DUTRIEC [Concomitant]
     Indication: Headache
     Dates: start: 2005

REACTIONS (16)
  - Diabetes mellitus [Not Recovered/Not Resolved]
  - Hypertension [Not Recovered/Not Resolved]
  - Fall [Recovered/Resolved]
  - Rib fracture [Recovered/Resolved]
  - Pain [Not Recovered/Not Resolved]
  - Fibromyalgia [Not Recovered/Not Resolved]
  - Osteoarthritis [Not Recovered/Not Resolved]
  - Tendonitis [Not Recovered/Not Resolved]
  - Weight decreased [Unknown]
  - Visual impairment [Not Recovered/Not Resolved]
  - Lactose intolerance [Not Recovered/Not Resolved]
  - Pyrexia [Not Recovered/Not Resolved]
  - Headache [Not Recovered/Not Resolved]
  - Chest pain [Unknown]
  - Product use issue [Unknown]
  - Product availability issue [Unknown]

NARRATIVE: CASE EVENT DATE: 20160101
